FAERS Safety Report 8433833-5 (Version None)
Quarter: 2012Q2

REPORT INFORMATION
  Report Type: 
  Country: None (occurrence: None)
  Receive Date: 20120613
  Receipt Date: 20120608
  Transmission Date: 20120825
  Serious: No
  Sender: FDA-Public Use
  Company Number: US-BAYER-2012-058110

PATIENT
  Age: 97 Year
  Sex: Female
  Weight: 63 kg

DRUGS (2)
  1. ALEVE (CAPLET) [Suspect]
     Indication: PAIN
     Dosage: 1 TABLET AS NEEDED OR 2 TABLETS - 24 COUNT
     Route: 048
     Dates: start: 20120501
  2. VITAMIN TAB [Concomitant]

REACTIONS (1)
  - PAIN [None]
